FAERS Safety Report 18858371 (Version 1)
Quarter: 2021Q1

REPORT INFORMATION
  Report Type: Spontaneous
  Country: US (occurrence: US)
  Receive Date: 20210208
  Receipt Date: 20210208
  Transmission Date: 20210420
  Serious: Yes (Other)
  Sender: FDA-Public Use
  Company Number: US-PURACAP-US-2021EPCLIT00067

PATIENT
  Age: 43 Year
  Sex: Male

DRUGS (2)
  1. IBUPROFEN. [Suspect]
     Active Substance: IBUPROFEN
     Indication: PRODUCT USED FOR UNKNOWN INDICATION
     Route: 065
  2. PREDNISONE. [Interacting]
     Active Substance: PREDNISONE
     Indication: TUBULOINTERSTITIAL NEPHRITIS
     Route: 048

REACTIONS (3)
  - Nephrotic syndrome [Recovering/Resolving]
  - Glomerulonephritis minimal lesion [Recovering/Resolving]
  - Tubulointerstitial nephritis [Recovering/Resolving]
